FAERS Safety Report 20739482 (Version 3)
Quarter: 2022Q2

REPORT INFORMATION
  Report Type: Report from Study
  Country: BE (occurrence: None)
  Receive Date: 20220422
  Receipt Date: 20220604
  Transmission Date: 20220721
  Serious: Yes (Hospitalization)
  Sender: FDA-Public Use
  Company Number: BE-ROCHE-2973611

PATIENT
  Age: 47 Year
  Sex: Male
  Weight: 80 kg

DRUGS (28)
  1. OCRELIZUMAB [Suspect]
     Active Substance: OCRELIZUMAB
     Indication: Relapsing-remitting multiple sclerosis
     Dosage: TWO 300MG INFUSIONS (INFUSION LENGTH=2.5 HOURS) ON DAYS 1 AND 15, FOLLOWED BY ONE 600MG INFUSION DOS
     Route: 042
     Dates: start: 20181122
  2. METHYLPREDNISOLONE [Suspect]
     Active Substance: METHYLPREDNISOLONE
     Indication: Premedication
     Dosage: LAST METHYLPREDNISOLONE ADMINISTERED PRIOR TO THIS EVENT ONSET 100 MG?NEXT DOSE ON 30/SEP/2021, 06/D
     Route: 042
     Dates: start: 20181122
  3. DALFAMPRIDINE [Concomitant]
     Active Substance: DALFAMPRIDINE
     Route: 048
     Dates: start: 20201029
  4. ACYCLOVIR [Concomitant]
     Active Substance: ACYCLOVIR
     Route: 048
     Dates: start: 20191024
  5. BACLOFEN [Concomitant]
     Active Substance: BACLOFEN
     Route: 048
     Dates: start: 20210415
  6. CHOLECALCIFEROL [Concomitant]
     Active Substance: CHOLECALCIFEROL
     Route: 048
     Dates: start: 20180725
  7. GABAPENTIN [Concomitant]
     Active Substance: GABAPENTIN
     Route: 048
     Dates: start: 20190509
  8. MAGNESIUM [Concomitant]
     Active Substance: MAGNESIUM
     Route: 048
     Dates: start: 20200513
  9. PROVIGIL (BELGIUM) [Concomitant]
     Route: 048
     Dates: start: 20210415
  10. PROVIGIL (BELGIUM) [Concomitant]
     Route: 048
     Dates: start: 20191024, end: 20210415
  11. LORAZEPAM [Concomitant]
     Active Substance: LORAZEPAM
     Route: 048
  12. VITAMIN B12 [Concomitant]
     Active Substance: CYANOCOBALAMIN
     Route: 058
     Dates: start: 20180727
  13. ZESTRIL [Concomitant]
     Active Substance: LISINOPRIL
     Route: 048
  14. CETIRIZINE [Concomitant]
     Active Substance: CETIRIZINE HYDROCHLORIDE
  15. COMIRNATY [Concomitant]
     Active Substance: TOZINAMERAN
  16. DEXAMETHASONE [Concomitant]
     Active Substance: DEXAMETHASONE
     Indication: Pneumonia
     Route: 048
     Dates: start: 20220408, end: 20220415
  17. DEXAMETHASONE [Concomitant]
     Active Substance: DEXAMETHASONE
     Route: 042
     Dates: end: 20220408
  18. DIFLUCAN [Concomitant]
     Active Substance: FLUCONAZOLE
     Indication: Oropharyngeal candidiasis
  19. SULFAMETHOXAZOLE\TRIMETHOPRIM [Concomitant]
     Active Substance: SULFAMETHOXAZOLE\TRIMETHOPRIM
     Route: 048
     Dates: start: 20220306, end: 20220418
  20. FLEET ENEMA [Concomitant]
     Active Substance: SODIUM PHOSPHATE, DIBASIC\SODIUM PHOSPHATE, MONOBASIC
     Indication: Constipation
     Dosage: 1 OTHER
     Route: 054
     Dates: start: 20211129, end: 20211129
  21. POLYETHYLENE GLYCOL 4000 [Concomitant]
     Active Substance: POLYETHYLENE GLYCOL 4000
     Indication: Constipation
     Route: 048
  22. MEDROL [Concomitant]
     Active Substance: METHYLPREDNISOLONE
     Indication: Pneumocystis jirovecii pneumonia
     Route: 048
     Dates: start: 20220411, end: 20220413
  23. MOVICOL [Concomitant]
     Active Substance: POLYETHYLENE GLYCOL 3350\POTASSIUM CHLORIDE\SODIUM BICARBONATE\SODIUM CHLORIDE
     Dates: start: 20220409, end: 20220506
  24. NILSTAT [Concomitant]
     Active Substance: NYSTATIN
     Indication: Oropharyngeal candidiasis
     Route: 048
  25. REMDESIVIR [Concomitant]
     Active Substance: REMDESIVIR
  26. CALCIUM CARBONATE\CHOLECALCIFEROL [Concomitant]
     Active Substance: CALCIUM CARBONATE\CHOLECALCIFEROL
     Route: 048
  27. PIPERACILLIN SODIUM\TAZOBACTAM SODIUM [Concomitant]
     Active Substance: PIPERACILLIN SODIUM\TAZOBACTAM SODIUM
     Indication: Pneumonia
     Route: 042
     Dates: start: 20211214, end: 20211221
  28. LORAZEPAM [Concomitant]
     Active Substance: LORAZEPAM
     Indication: Insomnia
     Route: 048

REACTIONS (2)
  - COVID-19 pneumonia [Recovered/Resolved with Sequelae]
  - COVID-19 pneumonia [Recovered/Resolved with Sequelae]

NARRATIVE: CASE EVENT DATE: 20211110
